FAERS Safety Report 4598139-3 (Version None)
Quarter: 2005Q1

REPORT INFORMATION
  Report Type: 
  Country: None (occurrence: None)
  Receive Date: 20050301
  Receipt Date: 20050301
  Transmission Date: 20050727
  Serious: Yes (Hospitalization)
  Sender: FDA-Public Use
  Company Number: None

PATIENT
  Age: 52 Year
  Sex: Male
  Weight: 136.9863 kg

DRUGS (7)
  1. LIPITOR [Suspect]
     Indication: HYPERLIPIDAEMIA
     Dosage: 80 MG ORALLY EVERY DAY
     Dates: start: 20040202, end: 20041123
  2. OMEPRAZOLE [Concomitant]
  3. ALBUTEROL [Concomitant]
  4. FLUTICASONE PROPIONATE [Concomitant]
  5. METFORMIN HCL [Concomitant]
  6. ADVAIR DISKUS 100/50 [Concomitant]
  7. IPRATROPIUM BROMIDE [Concomitant]

REACTIONS (3)
  - LETHARGY [None]
  - MYALGIA [None]
  - NAUSEA [None]
